FAERS Safety Report 14171515 (Version 1)
Quarter: 2017Q4

REPORT INFORMATION
  Report Type: Spontaneous
  Country: US (occurrence: US)
  Receive Date: 20171108
  Receipt Date: 20171108
  Transmission Date: 20180321
  Serious: Yes (Other)
  Sender: FDA-Public Use
  Company Number: PHEH2017US034758

PATIENT
  Age: 7 Year

DRUGS (4)
  1. BACTRIM [Concomitant]
     Active Substance: SULFAMETHOXAZOLE\TRIMETHOPRIM
     Indication: PRODUCT USED FOR UNKNOWN INDICATION
     Route: 065
  2. CYCLOSPORINE. [Concomitant]
     Active Substance: CYCLOSPORINE
     Indication: PRODUCT USED FOR UNKNOWN INDICATION
     Route: 065
  3. ANAKINRA [Concomitant]
     Active Substance: ANAKINRA
     Indication: PRODUCT USED FOR UNKNOWN INDICATION
     Route: 065
  4. ILARIS [Suspect]
     Active Substance: CANAKINUMAB
     Indication: PRODUCT USED FOR UNKNOWN INDICATION
     Route: 065

REACTIONS (9)
  - Anaemia macrocytic [Recovering/Resolving]
  - Pyrexia [Recovering/Resolving]
  - Histiocytosis haematophagic [Recovering/Resolving]
  - Lung disorder [Recovering/Resolving]
  - Urticaria [Recovering/Resolving]
  - Autoinflammatory disease [Recovering/Resolving]
  - Serum ferritin increased [Recovering/Resolving]
  - Inflammation [Recovering/Resolving]
  - Muscular weakness [Recovering/Resolving]
